FAERS Safety Report 11762366 (Version 1)
Quarter: 2015Q4

REPORT INFORMATION
  Report Type: Spontaneous
  Country: US (occurrence: US)
  Receive Date: 20151120
  Receipt Date: 20151120
  Transmission Date: 20160304
  Serious: No
  Sender: FDA-Public Use
  Company Number: US-ELI_LILLY_AND_COMPANY-US201301008452

PATIENT
  Sex: Female

DRUGS (2)
  1. FORTEO [Suspect]
     Active Substance: TERIPARATIDE
     Dosage: UNK, UNKNOWN
  2. FORTEO [Suspect]
     Active Substance: TERIPARATIDE
     Dosage: UNK
     Dates: start: 20130124

REACTIONS (6)
  - Flushing [Unknown]
  - Toothache [Unknown]
  - Spinal pain [Unknown]
  - Pain in jaw [Unknown]
  - Oropharyngeal discomfort [Unknown]
  - Nausea [Unknown]
